FAERS Safety Report 5347111-4 (Version None)
Quarter: 2007Q2

REPORT INFORMATION
  Report Type: 
  Country: None (occurrence: None)
  Receive Date: 20070604
  Receipt Date: 20070523
  Transmission Date: 20071010
  Serious: Yes (Hospitalization)
  Sender: FDA-Public Use
  Company Number: 2007US001184

PATIENT
  Age: 72 Year
  Sex: Female

DRUGS (1)
  1. AMEVIVE [Suspect]
     Indication: PSORIASIS
     Dosage: 15 MG, INTRAMUSCULAR
     Route: 030
     Dates: start: 20070502

REACTIONS (4)
  - CHILLS [None]
  - DYSPNOEA [None]
  - PARAESTHESIA [None]
  - PYREXIA [None]
